FAERS Safety Report 10034470 (Version 2)
Quarter: 2014Q2

REPORT INFORMATION
  Report Type: Spontaneous
  Country: US (occurrence: None)
  Receive Date: 20140321
  Receipt Date: 20140410
  Transmission Date: 20141212
  Serious: Yes (Hospitalization)
  Sender: FDA-Public Use
  Company Number: UTC-045871

PATIENT
  Age: 72 Year
  Sex: Male
  Weight: 89.81 kg

DRUGS (3)
  1. TYVASO [Suspect]
     Indication: PULMONARY ARTERIAL HYPERTENSION
     Route: 055
     Dates: start: 20100111
  2. TRACLEER (BOSENTAN) [Concomitant]
  3. SILDENAFIL (SILDENAFIL) [Concomitant]

REACTIONS (5)
  - Clavicle fracture [None]
  - Fall [None]
  - Laceration [None]
  - Brain contusion [None]
  - Head injury [None]
